FAERS Safety Report 7460869-3 (Version None)
Quarter: 2011Q2

REPORT INFORMATION
  Report Type: 
  Country: None (occurrence: None)
  Receive Date: 20110505
  Receipt Date: 20110215
  Transmission Date: 20111010
  Serious: Yes (Death, Life-Threatening, Hospitalization)
  Sender: FDA-Public Use
  Company Number: JP-AMGEN-JPNCT2010004057

PATIENT
  Age: 76 Year
  Sex: Male
  Weight: 46 kg

DRUGS (17)
  1. BONALON [Concomitant]
     Route: 048
  2. DECADRON [Concomitant]
     Route: 048
  3. PANITUMUMAB [Suspect]
     Indication: COLORECTAL CANCER
     Dosage: 6 MG/KG, Q2WK
     Route: 041
     Dates: start: 20100908, end: 20101006
  4. IRINOTECAN HCL [Concomitant]
     Indication: COLORECTAL CANCER
     Route: 041
     Dates: start: 20100908, end: 20101006
  5. CALCIUM LEVOFOLINATE [Concomitant]
     Route: 041
     Dates: start: 20100908, end: 20101006
  6. NAUZELIN [Concomitant]
     Route: 048
  7. PARIET [Concomitant]
     Route: 048
  8. CORTICOSTEROIDS [Concomitant]
     Indication: PROPHYLAXIS
     Route: 065
  9. WARKMIN [Concomitant]
     Route: 048
  10. DECADRON PHOSPHATE [Concomitant]
     Route: 042
  11. EMEND [Concomitant]
     Route: 048
  12. CALCIUM LEVOFOLINATE [Concomitant]
     Indication: COLORECTAL CANCER
     Dosage: UNK UNK, Q2WK
     Route: 041
     Dates: start: 20100908, end: 20101006
  13. ANTIHISTAMINES [Concomitant]
     Indication: PROPHYLAXIS
     Route: 065
  14. TSUMURA HANGE-SHASHIN-TO EXTRACT [Concomitant]
     Route: 048
  15. FLUOROURACIL [Concomitant]
     Indication: COLORECTAL CANCER
     Route: 041
     Dates: start: 20100908, end: 20101006
  16. ALOXI [Concomitant]
     Route: 042
  17. RESTAMIN [Concomitant]
     Route: 048

REACTIONS (5)
  - DERMATITIS ACNEIFORM [None]
  - FEBRILE NEUTROPENIA [None]
  - GASTROENTERITIS [None]
  - PNEUMONIA ASPIRATION [None]
  - PLATELET COUNT DECREASED [None]
